FAERS Safety Report 12680027 (Version 1)
Quarter: 2016Q3

REPORT INFORMATION
  Report Type: Spontaneous
  Country: US (occurrence: US)
  Receive Date: 20160824
  Receipt Date: 20160824
  Transmission Date: 20161109
  Serious: Yes (Hospitalization)
  Sender: FDA-Public Use
  Company Number: US-AMGEN-USASP2016107884

PATIENT
  Sex: Female

DRUGS (2)
  1. IMLYGIC [Suspect]
     Active Substance: TALIMOGENE LAHERPAREPVEC
     Indication: METASTATIC MALIGNANT MELANOMA
     Dosage: (10 TO THE 8TH)
     Route: 065
     Dates: start: 2016
  2. OPDIVO [Concomitant]
     Active Substance: NIVOLUMAB
     Indication: METASTATIC MALIGNANT MELANOMA
     Dosage: UNK

REACTIONS (3)
  - Vomiting [Unknown]
  - Mental status changes [Unknown]
  - Off label use [Unknown]

NARRATIVE: CASE EVENT DATE: 2016
